FAERS Safety Report 7442261-0 (Version None)
Quarter: 2011Q2

REPORT INFORMATION
  Report Type: 
  Country: None (occurrence: None)
  Receive Date: 20110425
  Receipt Date: 20110425
  Transmission Date: 20111010
  Serious: No
  Sender: FDA-Public Use
  Company Number: None

PATIENT
  Age: 30 Year
  Sex: Female
  Weight: 63.5036 kg

DRUGS (1)
  1. TOPAMAX [Suspect]
     Dosage: 25 MG DAILY PO
     Route: 048
     Dates: start: 20100917

REACTIONS (3)
  - VOMITING [None]
  - NAUSEA [None]
  - HEADACHE [None]
